FAERS Safety Report 5193834-X (Version None)
Quarter: 2006Q4

REPORT INFORMATION
  Report Type: 
  Country: None (occurrence: None)
  Receive Date: 20061222
  Receipt Date: 20061205
  Transmission Date: 20070319
  Serious: Yes (Other)
  Sender: FDA-Public Use
  Company Number: DSA_29065_2006

PATIENT
  Age: 62 Year
  Sex: Female

DRUGS (8)
  1. CARDIZEM LA [Suspect]
     Indication: ATRIAL FIBRILLATION
     Dosage: 120 MG Q DAY PO
     Route: 048
     Dates: start: 20051001, end: 20051115
  2. CARDIZEM CD [Suspect]
     Indication: ATRIAL FIBRILLATION
     Dosage: 180 MG Q DAY PO
     Route: 048
     Dates: start: 20051116, end: 20051117
  3. CARDIZEM LA [Suspect]
     Indication: ATRIAL FIBRILLATION
     Dosage: 180 MG Q DAY PO
     Route: 048
     Dates: start: 20051118, end: 20060101
  4. CARDIZEM LA [Suspect]
     Indication: ATRIAL FIBRILLATION
     Dosage: 180 MG Q DAY PO
     Route: 048
     Dates: start: 20060101, end: 20060101
  5. CARDIZEM LA [Suspect]
     Indication: ATRIAL FIBRILLATION
     Dosage: 180 MG Q DAY PO
     Route: 048
     Dates: start: 20060101
  6. PLAVIX [Concomitant]
  7. DIGOXIN [Concomitant]
  8. TOPROL-XL [Concomitant]

REACTIONS (11)
  - ANGINA PECTORIS [None]
  - ATRIAL FIBRILLATION [None]
  - CONDITION AGGRAVATED [None]
  - DIZZINESS [None]
  - ECONOMIC PROBLEM [None]
  - HEADACHE [None]
  - INCORRECT DRUG DOSAGE FORM ADMINISTERED [None]
  - OEDEMA PERIPHERAL [None]
  - PAIN IN JAW [None]
  - STENT PLACEMENT [None]
  - VISION BLURRED [None]
